FAERS Safety Report 8365155-5 (Version None)
Quarter: 2012Q2

REPORT INFORMATION
  Report Type: 
  Country: None (occurrence: None)
  Receive Date: 20120516
  Receipt Date: 20120511
  Transmission Date: 20120825
  Serious: Yes (Other)
  Sender: FDA-Public Use
  Company Number: US-PFIZER INC-2012115765

PATIENT
  Sex: Female
  Weight: 59.864 kg

DRUGS (3)
  1. XALATAN [Suspect]
     Indication: LACRIMATION INCREASED
     Dosage: ONCE A DAY IN EACH EYE
     Route: 047
     Dates: start: 20090101
  2. LOSARTAN POTASSIUM AND HYDROCHLOROTHIAZIDE [Concomitant]
     Indication: HYPERTENSION
     Dosage: 100/25 MG
  3. XALATAN [Suspect]
     Indication: GLAUCOMA

REACTIONS (6)
  - FALL [None]
  - JOINT INJURY [None]
  - EYE INJURY [None]
  - FACE INJURY [None]
  - EYE COLOUR CHANGE [None]
  - HAEMORRHAGE [None]
